FAERS Safety Report 11337563 (Version 1)
Quarter: 2015Q3

REPORT INFORMATION
  Report Type: Spontaneous
  Country: US (occurrence: US)
  Receive Date: 20150803
  Receipt Date: 20150803
  Transmission Date: 20151125
  Serious: No
  Sender: FDA-Public Use
  Company Number: US-ELI_LILLY_AND_COMPANY-US200909000422

PATIENT
  Age: 59 Year
  Sex: Male

DRUGS (3)
  1. ESCITALOPRAM [Concomitant]
     Active Substance: ESCITALOPRAM OXALATE
  2. BUPROPION. [Concomitant]
     Active Substance: BUPROPION
  3. OLANZAPINE. [Suspect]
     Active Substance: OLANZAPINE
     Indication: SCHIZOAFFECTIVE DISORDER
     Dosage: UNK, DAILY (1/D)

REACTIONS (3)
  - Blunted affect [Unknown]
  - Apathy [Unknown]
  - Mental impairment [Unknown]
